FAERS Safety Report 4710603-2 (Version None)
Quarter: 2005Q3

REPORT INFORMATION
  Report Type: 
  Country: None (occurrence: None)
  Receive Date: 20050711
  Receipt Date: 20050207
  Transmission Date: 20060218
  Serious: Yes (Other)
  Sender: FDA-Public Use
  Company Number: PHEH2005US01768

PATIENT
  Age: 67 Year
  Sex: Female

DRUGS (6)
  1. TAMOXIFEN [Concomitant]
  2. LETROZOLE [Concomitant]
  3. ANASTROZOLE [Concomitant]
  4. FASLODEX [Concomitant]
  5. DOXORUBICIN HCL [Concomitant]
  6. ZOMETA [Suspect]
     Indication: METASTASES TO BONE

REACTIONS (3)
  - INFECTION [None]
  - OSTEONECROSIS [None]
  - SEQUESTRECTOMY [None]
